FAERS Safety Report 10275754 (Version 1)
Quarter: 2014Q3

REPORT INFORMATION
  Report Type: Spontaneous
  Country: US (occurrence: None)
  Receive Date: 20140701
  Receipt Date: 20140701
  Transmission Date: 20150326
  Serious: Yes (Disabling, Other)
  Sender: FDA-Public Use
  Company Number: 2014-19803

PATIENT
  Age: 77 Year
  Sex: Male

DRUGS (1)
  1. EYLEA [Suspect]
     Active Substance: AFLIBERCEPT
     Indication: AGE-RELATED MACULAR DEGENERATION
     Dosage: Q6-8 WEEKS
     Dates: start: 20130827

REACTIONS (2)
  - Endophthalmitis [None]
  - Visual acuity reduced [None]

NARRATIVE: CASE EVENT DATE: 20140613
